FAERS Safety Report 10390878 (Version 1)
Quarter: 2014Q3

REPORT INFORMATION
  Report Type: Report from Study
  Country: IE (occurrence: IE)
  Receive Date: 20140818
  Receipt Date: 20140818
  Transmission Date: 20150326
  Serious: Yes (Other)
  Sender: FDA-Public Use
  Company Number: IE-TEVA-502607ISR

PATIENT
  Age: 59 Year
  Sex: Female

DRUGS (5)
  1. CYSTRIN [Concomitant]
     Dosage: 5 MILLIGRAM DAILY;
  2. COPAXONE [Suspect]
     Active Substance: GLATIRAMER ACETATE
     Dosage: 20 MILLIGRAM DAILY; TREATMENT IS DISCONTINUED
     Route: 058
     Dates: start: 20111201, end: 20140623
  3. NU-SEALS [Concomitant]
     Dosage: 75 MILLIGRAM DAILY;
  4. CYMBALTA [Concomitant]
     Active Substance: DULOXETINE HYDROCHLORIDE
  5. IXPRIM [Concomitant]
     Active Substance: ACETAMINOPHEN\TRAMADOL HYDROCHLORIDE
     Dosage: 75MG OF PARACETAMOL AND 650MG TRAMADOL HYDROCHLORIDE FOUR TIMES DAILY

REACTIONS (3)
  - Injection site infection [Unknown]
  - Abdomen crushing [Unknown]
  - Lack of injection site rotation [Unknown]

NARRATIVE: CASE EVENT DATE: 20140623
